FAERS Safety Report 24546386 (Version 1)
Quarter: 2024Q4

REPORT INFORMATION
  Report Type: Report from Study
  Country: US (occurrence: US)
  Receive Date: 20241024
  Receipt Date: 20241024
  Transmission Date: 20250115
  Serious: Yes (Other)
  Sender: REGENERON
  Company Number: US-REGENERON PHARMACEUTICALS, INC.-2024-105171

PATIENT
  Sex: Male

DRUGS (3)
  1. CEMIPLIMAB [Suspect]
     Active Substance: CEMIPLIMAB
     Indication: Basal cell carcinoma
     Dosage: 350 MG, Q3W
     Route: 042
     Dates: start: 20240508
  2. VITAMIN B [Concomitant]
     Active Substance: VITAMIN B
     Indication: Product used for unknown indication
     Dosage: UNK
  3. VITAMIN D NOS [Concomitant]
     Active Substance: CHOLECALCIFEROL\ERGOCALCIFEROL
     Indication: Product used for unknown indication
     Dosage: UNK

REACTIONS (9)
  - Skin exfoliation [Recovered/Resolved]
  - Photophobia [Unknown]
  - Hypoaesthesia [Unknown]
  - Grip strength decreased [Unknown]
  - Dizziness [Unknown]
  - Rash [Recovered/Resolved]
  - Fatigue [Unknown]
  - Sleep disorder [Unknown]
  - Adverse event [Not Recovered/Not Resolved]

NARRATIVE: CASE EVENT DATE: 20240619
